FAERS Safety Report 8607514-9 (Version None)
Quarter: 2012Q3

REPORT INFORMATION
  Report Type: 
  Country: None (occurrence: None)
  Receive Date: 20120809
  Receipt Date: 20120809
  Transmission Date: 20120928
  Serious: Yes (Life-Threatening, Hospitalization)
  Sender: FDA-Public Use
  Company Number: None

PATIENT
  Age: 69 Year
  Sex: Male
  Weight: 88 kg

DRUGS (2)
  1. SIMVASTATIN [Suspect]
     Dosage: 40 MG, HS, PO
     Route: 048
     Dates: start: 20070104, end: 20120223
  2. NIASPAN [Suspect]
     Dosage: 1000 MG, BID, PO
     Route: 048
     Dates: start: 20090424, end: 20120223

REACTIONS (5)
  - FALL [None]
  - RENAL TUBULAR NECROSIS [None]
  - HYPERKALAEMIA [None]
  - RENAL FAILURE ACUTE [None]
  - RHABDOMYOLYSIS [None]
